FAERS Safety Report 5607047-8 (Version None)
Quarter: 2008Q1

REPORT INFORMATION
  Report Type: 
  Country: None (occurrence: None)
  Receive Date: 20080129
  Receipt Date: 20080117
  Transmission Date: 20080703
  Serious: Yes (Other)
  Sender: FDA-Public Use
  Company Number: US-PFIZER INC-2008006035

PATIENT
  Sex: Female
  Weight: 55.8 kg

DRUGS (7)
  1. DILANTIN [Interacting]
     Indication: CONVULSION
  2. FENTANYL CITRATE [Interacting]
     Indication: COMPLEX REGIONAL PAIN SYNDROME
  3. KEPPRA [Interacting]
     Indication: CONVULSION
  4. DEMEROL [Suspect]
  5. VALIUM [Concomitant]
  6. PRILOSEC [Concomitant]
  7. RESTORIL [Concomitant]

REACTIONS (5)
  - ANTICONVULSANT DRUG LEVEL DECREASED [None]
  - CONVULSION [None]
  - DRUG INTERACTION [None]
  - DRUG WITHDRAWAL SYNDROME [None]
  - WEIGHT DECREASED [None]
